FAERS Safety Report 22159342 (Version 1)
Quarter: 2023Q1

REPORT INFORMATION
  Report Type: Spontaneous
  Country: US (occurrence: US)
  Receive Date: 20230331
  Receipt Date: 20230331
  Transmission Date: 20230418
  Serious: No
  Sender: FDA-Public Use
  Company Number: US-JNJFOC-20230342305

PATIENT
  Age: 40 Year
  Sex: Male

DRUGS (5)
  1. TYLENOL [Suspect]
     Active Substance: ACETAMINOPHEN
     Indication: Cough
     Route: 065
     Dates: start: 20230314
  2. TYLENOL [Suspect]
     Active Substance: ACETAMINOPHEN
     Indication: Laryngitis
  3. IBUPROFEN [Suspect]
     Active Substance: IBUPROFEN
     Indication: Cough
     Route: 065
     Dates: start: 20230314
  4. IBUPROFEN [Suspect]
     Active Substance: IBUPROFEN
     Indication: Laryngitis
  5. MUCINEX FAST-MAX COLD AND FLU [Concomitant]
     Active Substance: ACETAMINOPHEN\DEXTROMETHORPHAN HYDROBROMIDE\GUAIFENESIN\PHENYLEPHRINE HYDROCHLORIDE
     Indication: Product used for unknown indication
     Route: 065

REACTIONS (2)
  - Off label use [Unknown]
  - Therapeutic response unexpected [Unknown]

NARRATIVE: CASE EVENT DATE: 20230314
